FAERS Safety Report 9208063 (Version 1)
Quarter: 2013Q2

REPORT INFORMATION
  Report Type: Spontaneous
  Country: US (occurrence: US)
  Receive Date: 20130403
  Receipt Date: 20130403
  Transmission Date: 20140414
  Serious: Yes (Hospitalization)
  Sender: FDA-Public Use
  Company Number: US-B.I. PHARMACEUTICALS,INC./RIDGEFIELD-2013-BI-08493BP

PATIENT
  Age: 82 Year
  Sex: Female
  Weight: 45 kg

DRUGS (12)
  1. PRADAXA [Suspect]
     Indication: ATRIAL FIBRILLATION
     Dosage: 300 MG
     Route: 048
     Dates: start: 201201
  2. GABAPENTIN [Concomitant]
  3. ZANTAC [Concomitant]
  4. OMEPRAZOLE [Concomitant]
  5. COREG [Concomitant]
  6. DIOVAN [Concomitant]
  7. LOVAZA [Concomitant]
  8. SYNTHROID [Concomitant]
  9. METHOTREXATE [Concomitant]
  10. FOLIC ACID [Concomitant]
  11. VITAMIN D [Concomitant]
  12. COENZYME Q10 [Concomitant]

REACTIONS (9)
  - Fall [Recovered/Resolved]
  - Joint swelling [Recovered/Resolved]
  - Contusion [Recovered/Resolved]
  - Head injury [Recovered/Resolved]
  - Arthralgia [Recovered/Resolved]
  - Arthralgia [Not Recovered/Not Resolved]
  - Arthralgia [Recovered/Resolved]
  - Arthralgia [Not Recovered/Not Resolved]
  - Headache [Not Recovered/Not Resolved]
